FAERS Safety Report 4649276-6 (Version None)
Quarter: 2005Q2

REPORT INFORMATION
  Report Type: 
  Country: None (occurrence: None)
  Receive Date: 20050429
  Receipt Date: 20050126
  Transmission Date: 20051028
  Serious: Yes (Disabling)
  Sender: FDA-Public Use
  Company Number: DE-MERCK-0501DEU00261

PATIENT
  Age: 51 Year
  Sex: Male

DRUGS (3)
  1. VIOXX [Suspect]
     Indication: POST-TRAUMATIC OSTEOPOROSIS
     Route: 048
     Dates: start: 20010716, end: 20040901
  2. VIOXX [Suspect]
     Indication: OSTEOARTHRITIS
     Route: 048
     Dates: start: 20010716, end: 20040901
  3. ESOMEPRAZOLE MAGNESIUM [Concomitant]
     Route: 048
     Dates: start: 20030401

REACTIONS (4)
  - DYSPHONIA [None]
  - ECZEMA IMPETIGINOUS [None]
  - ECZEMA INFECTED [None]
  - LICHENIFICATION [None]
